FAERS Safety Report 13528773 (Version 1)
Quarter: 2017Q2

REPORT INFORMATION
  Report Type: Spontaneous
  Country: US (occurrence: US)
  Receive Date: 20170509
  Receipt Date: 20170509
  Transmission Date: 20170830
  Serious: No
  Sender: FDA-Public Use
  Company Number: US-UCBSA-2016044351

PATIENT
  Sex: Female

DRUGS (1)
  1. BRIVIACT [Suspect]
     Active Substance: BRIVARACETAM
     Indication: PRODUCT USED FOR UNKNOWN INDICATION
     Dosage: 10 MG ONE TABLET 10 TIMES A DAY
     Route: 048

REACTIONS (3)
  - Product packaging issue [Unknown]
  - Intentional product misuse [Unknown]
  - Drug ineffective [Unknown]
